FAERS Safety Report 16637200 (Version 1)
Quarter: 2019Q3

REPORT INFORMATION
  Report Type: Spontaneous
  Country: US (occurrence: US)
  Receive Date: 20190726
  Receipt Date: 20190726
  Transmission Date: 20191004
  Serious: Yes (Other)
  Sender: FDA-Public Use
  Company Number: US-GLAXOSMITHKLINE-US2019AMR132677

PATIENT
  Sex: Male

DRUGS (1)
  1. AVODART [Suspect]
     Active Substance: DUTASTERIDE
     Indication: PRODUCT USED FOR UNKNOWN INDICATION
     Dosage: UNK
     Route: 065
     Dates: start: 2002

REACTIONS (8)
  - Prostatic operation [Unknown]
  - Drug ineffective [Unknown]
  - Biopsy [Unknown]
  - Device related infection [Unknown]
  - Ill-defined disorder [Unknown]
  - Catheter placement [Unknown]
  - Prostatomegaly [Unknown]
  - Pain [Unknown]
